FAERS Safety Report 5446333-1 (Version None)
Quarter: 2007Q3

REPORT INFORMATION
  Report Type: 
  Country: None (occurrence: None)
  Receive Date: 20070907
  Receipt Date: 20070829
  Transmission Date: 20080115
  Serious: Yes (Hospitalization)
  Sender: FDA-Public Use
  Company Number: AU-ROCHE-513988

PATIENT
  Age: 60 Year
  Sex: Male
  Weight: 75.2 kg

DRUGS (8)
  1. CAPECITABINE [Suspect]
     Indication: COLON CANCER
     Route: 048
     Dates: start: 20070809, end: 20070822
  2. BEVACIZUMAB [Suspect]
     Indication: COLON CANCER
     Route: 042
     Dates: start: 20070809, end: 20070809
  3. MIXTARD HUMAN 70/30 [Concomitant]
     Route: 058
  4. ACETAMINOPHEN W/ CODEINE [Concomitant]
     Indication: PAIN
     Route: 048
     Dates: start: 20070825, end: 20070825
  5. ATENOLOL [Concomitant]
     Indication: HYPERTENSION
     Route: 048
  6. GLYBURIDE [Concomitant]
     Indication: DRUG THERAPY
     Route: 048
  7. SPIROLACTONE [Concomitant]
     Indication: POLYURIA
     Route: 048
  8. ESOMEPRAZOLE MAGNESIUM [Concomitant]
     Indication: ILL-DEFINED DISORDER
     Route: 048

REACTIONS (6)
  - DIARRHOEA [None]
  - FATIGUE [None]
  - HYPERGLYCAEMIA [None]
  - MUCOSAL INFLAMMATION [None]
  - NAUSEA [None]
  - PYREXIA [None]
